FAERS Safety Report 11792828 (Version 1)
Quarter: 2015Q4

REPORT INFORMATION
  Report Type: Spontaneous
  Country: US (occurrence: None)
  Receive Date: 20151130
  Receipt Date: 20151130
  Transmission Date: 20160305
  Serious: Yes (Death)
  Sender: FDA-Public Use
  Company Number: None

PATIENT
  Age: 66 Year
  Sex: Male

DRUGS (1)
  1. TEMODAR [Suspect]
     Active Substance: TEMOZOLOMIDE
     Indication: PROSTATE CANCER
     Route: 048
     Dates: start: 20151011, end: 201511

REACTIONS (1)
  - Death [None]

NARRATIVE: CASE EVENT DATE: 20151119
